FAERS Safety Report 7800113-8 (Version None)
Quarter: 2011Q4

REPORT INFORMATION
  Report Type: 
  Country: None (occurrence: None)
  Receive Date: 20111004
  Receipt Date: 20110922
  Transmission Date: 20120403
  Serious: Yes (Other)
  Sender: FDA-Public Use
  Company Number: 2011SP043966

PATIENT
  Sex: Female
  Weight: 65 kg

DRUGS (2)
  1. DESOGESTREL AND ETHINYL ESTRADIOL [Suspect]
     Indication: CONTRACEPTION
     Dosage: ; QD;PO   ;QD;PO
     Route: 048
     Dates: start: 20090101, end: 20110101
  2. DESOGESTREL AND ETHINYL ESTRADIOL [Suspect]
     Indication: CONTRACEPTION
     Dosage: ; QD;PO   ;QD;PO
     Route: 048
     Dates: start: 20110101, end: 20110901

REACTIONS (7)
  - ABDOMINAL PAIN LOWER [None]
  - AMENORRHOEA [None]
  - ANAEMIA [None]
  - BACK PAIN [None]
  - METRORRHAGIA [None]
  - ASTHENIA [None]
  - FALL [None]
